FAERS Safety Report 7900562-3 (Version None)
Quarter: 2011Q4

REPORT INFORMATION
  Report Type: 
  Country: None (occurrence: None)
  Receive Date: 20111108
  Receipt Date: 20111103
  Transmission Date: 20120403
  Serious: Yes (Death, Life-Threatening, Hospitalization, Disabling, Other)
  Sender: FDA-Public Use
  Company Number: CH-GENZYME-CLOF-1001749

PATIENT
  Sex: Female
  Weight: 78 kg

DRUGS (6)
  1. AMSACRINE [Suspect]
     Indication: ACUTE MYELOID LEUKAEMIA
     Dosage: 220 MG, QD (CYCLE 2)
     Route: 042
     Dates: start: 20110730, end: 20110801
  2. POSACONAZOLE [Concomitant]
     Indication: PROPHYLAXIS
     Dosage: 200 MG X 3
     Route: 048
     Dates: start: 20110702, end: 20110811
  3. CASPOFUNGIN ACETATE [Concomitant]
     Indication: INFECTION
     Dosage: 50 MG, QD
     Route: 042
     Dates: start: 20110812, end: 20110824
  4. EVOLTRA [Suspect]
     Indication: ACUTE MYELOID LEUKAEMIA
     Dosage: 18 MG, QD (CYCLE 2)
     Route: 042
     Dates: start: 20110728, end: 20110801
  5. CYTARABINE [Suspect]
     Indication: ACUTE MYELOID LEUKAEMIA
     Dosage: 3600 MG, QD (CYCLE 2)
     Route: 042
     Dates: start: 20110727, end: 20110802
  6. NOXAFIL [Concomitant]
     Indication: ANTIFUNGAL PROPHYLAXIS
     Dosage: 200 MG, TID
     Route: 048
     Dates: start: 20110702, end: 20110811

REACTIONS (4)
  - ZYGOMYCOSIS [None]
  - FUSARIUM INFECTION [None]
  - CARDIAC ARREST [None]
  - NEUTROPENIC COLITIS [None]
